FAERS Safety Report 11656466 (Version 1)
Quarter: 2015Q4

REPORT INFORMATION
  Report Type: Spontaneous
  Country: TR (occurrence: TR)
  Receive Date: 20151023
  Receipt Date: 20151023
  Transmission Date: 20160304
  Serious: Yes (Other)
  Sender: FDA-Public Use
  Company Number: TR-PERRIGO-15TR010813

PATIENT
  Age: 14 Year
  Sex: Male

DRUGS (2)
  1. ACETAMINOPHEN 650 MG 363 [Suspect]
     Active Substance: ACETAMINOPHEN
     Indication: PRODUCT USED FOR UNKNOWN INDICATION
     Dosage: UNK
     Route: 065
  2. ACETAMINOPHEN 650 MG 363 [Suspect]
     Active Substance: ACETAMINOPHEN
     Indication: DRUG PROVOCATION TEST
     Dosage: DIVIDED DOSES UP TO 50 MG
     Route: 065

REACTIONS (3)
  - Anaphylactic reaction [Unknown]
  - Hypersensitivity [Unknown]
  - Urticaria [Unknown]
